FAERS Safety Report 5463319-1 (Version None)
Quarter: 2007Q3

REPORT INFORMATION
  Report Type: 
  Country: None (occurrence: None)
  Receive Date: 20070920
  Receipt Date: 20070912
  Transmission Date: 20080115
  Serious: Yes (Death, Other)
  Sender: FDA-Public Use
  Company Number: PHBS2007JP08125

PATIENT
  Age: 91 Year
  Sex: Male
  Weight: 41 kg

DRUGS (11)
  1. DIOVAN [Suspect]
     Indication: HYPERTENSION
     Dosage: 40 MG/DAY
     Route: 048
     Dates: start: 20070420, end: 20070507
  2. WARFARIN SODIUM [Concomitant]
     Indication: CARDIAC PACEMAKER INSERTION
     Dosage: 1 MG/DAY
     Route: 048
     Dates: start: 19890101
  3. FUROSEMIDE [Concomitant]
     Indication: CARDIAC FAILURE CHRONIC
     Dosage: 100 MG/DAY
     Dates: start: 20051224, end: 20070521
  4. CANDESARTAN CILEXETIL [Concomitant]
     Dates: start: 20060325, end: 20070419
  5. ACARDI [Concomitant]
     Indication: CARDIAC FAILURE CHRONIC
     Dosage: 2.5 MG/DAY
     Route: 048
     Dates: start: 20060325
  6. INCREMIN [Concomitant]
     Indication: ANAEMIA
     Dosage: 12 ML/DAY
     Route: 048
     Dates: start: 20060325
  7. ARICEPT [Concomitant]
     Indication: DEMENTIA
     Dosage: 5 MG/DAY
     Route: 048
     Dates: start: 20060325
  8. MAGNESIUM OXIDE [Concomitant]
     Indication: CONSTIPATION
     Dosage: 1.0 G/DAY
     Route: 048
     Dates: start: 20060325
  9. GRAMALIL [Concomitant]
     Dosage: 25 MG/DAY
     Route: 048
     Dates: start: 20060329
  10. VASOLATOR [Concomitant]
     Indication: CARDIAC FAILURE CHRONIC
     Dosage: 1 DF/DAY
     Route: 061
     Dates: start: 20060407
  11. OMEPRAZON [Concomitant]
     Indication: REFLUX OESOPHAGITIS
     Dosage: 20 MG/DAY
     Route: 048
     Dates: start: 20060414

REACTIONS (12)
  - ACUTE RESPIRATORY FAILURE [None]
  - ASPHYXIA [None]
  - BLOOD CREATININE INCREASED [None]
  - BLOOD UREA INCREASED [None]
  - CARDIAC FAILURE [None]
  - DEHYDRATION [None]
  - OEDEMA [None]
  - PHYSICAL EXAMINATION ABNORMAL [None]
  - PNEUMONIA [None]
  - RENAL IMPAIRMENT [None]
  - RESPIRATORY ARREST [None]
  - SPUTUM ABNORMAL [None]
